FAERS Safety Report 11875259 (Version 1)
Quarter: 2015Q4

REPORT INFORMATION
  Report Type: Spontaneous
  Country: US (occurrence: US)
  Receive Date: 20151229
  Receipt Date: 20151229
  Transmission Date: 20160305
  Serious: Yes (Hospitalization, Disabling, Other)
  Sender: FDA-Public Use
  Company Number: US-ASTELLAS-2015US047914

PATIENT
  Age: 33 Year
  Sex: Female

DRUGS (3)
  1. MYCOPHENOLIC ACID. [Suspect]
     Active Substance: MYCOPHENOLIC ACID
     Indication: PANCREAS TRANSPLANT
     Route: 065
  2. TACROLIMUS. [Suspect]
     Active Substance: TACROLIMUS
     Indication: PANCREAS TRANSPLANT
     Route: 065
  3. PREDNISONE. [Suspect]
     Active Substance: PREDNISONE
     Indication: PANCREAS TRANSPLANT
     Route: 065

REACTIONS (10)
  - Off label use [Unknown]
  - Optic neuropathy [Unknown]
  - Cytomegalovirus viraemia [Unknown]
  - Human polyomavirus infection [Unknown]
  - Skin disorder [Unknown]
  - Muscular weakness [Recovering/Resolving]
  - Skin necrosis [Unknown]
  - Retinal vascular occlusion [Unknown]
  - Blindness [Not Recovered/Not Resolved]
  - Myositis [Unknown]
